FAERS Safety Report 15966066 (Version 3)
Quarter: 2019Q1

REPORT INFORMATION
  Report Type: Spontaneous
  Country: US (occurrence: US)
  Receive Date: 20190215
  Receipt Date: 20190311
  Transmission Date: 20190418
  Serious: Yes (Hospitalization, Other)
  Sender: FDA-Public Use
  Company Number: US-LUPIN PHARMACEUTICALS INC.-2019-00925

PATIENT
  Age: 44 Year
  Sex: Male
  Weight: 144.22 kg

DRUGS (3)
  1. CEFTRIAXONE FOR INJECTION USP, 1 G [Suspect]
     Active Substance: CEFTRIAXONE
     Indication: COUGH
  2. CEFTRIAXONE FOR INJECTION USP, 1 G [Suspect]
     Active Substance: CEFTRIAXONE
     Indication: PNEUMONIA
     Dosage: 1 GRAM, QD
     Route: 030
     Dates: start: 20181222, end: 20181222
  3. XELJANZ [Concomitant]
     Active Substance: TOFACITINIB CITRATE
     Indication: PRODUCT USED FOR UNKNOWN INDICATION
     Dosage: UNK
     Route: 065

REACTIONS (9)
  - Dizziness [Unknown]
  - Pruritus generalised [Unknown]
  - Generalised oedema [Recovered/Resolved]
  - Limb discomfort [Unknown]
  - Generalised erythema [Recovered/Resolved]
  - Blood pressure decreased [Recovered/Resolved]
  - Hypersensitivity [Recovered/Resolved]
  - Dyspnoea [Unknown]
  - Anxiety [Unknown]

NARRATIVE: CASE EVENT DATE: 20181222
